FAERS Safety Report 14868406 (Version 1)
Quarter: 2018Q2

REPORT INFORMATION
  Report Type: Spontaneous
  Country: GB (occurrence: GB)
  Receive Date: 20180509
  Receipt Date: 20180509
  Transmission Date: 20180711
  Serious: Yes (Hospitalization)
  Sender: FDA-Public Use
  Company Number: GB-ADDMEDICA-201800095

PATIENT
  Age: 27 Year

DRUGS (1)
  1. HYDROXYCARBAMIDE [Suspect]
     Active Substance: HYDROXYUREA
     Indication: PRODUCT USED FOR UNKNOWN INDICATION
     Route: 065

REACTIONS (3)
  - Neutropenic sepsis [Unknown]
  - Incorrect drug administration duration [Recovered/Resolved]
  - Drug prescribing error [None]

NARRATIVE: CASE EVENT DATE: 20170216
